FAERS Safety Report 5123321-6 (Version None)
Quarter: 2006Q4

REPORT INFORMATION
  Report Type: 
  Country: None (occurrence: None)
  Receive Date: 20061009
  Receipt Date: 20061002
  Transmission Date: 20070319
  Serious: Yes (Death, Hospitalization)
  Sender: FDA-Public Use
  Company Number: US-BRISTOL-MYERS SQUIBB COMPANY-13527585

PATIENT
  Age: 76 Year
  Sex: Male
  Weight: 80 kg

DRUGS (3)
  1. CETUXIMAB [Suspect]
     Indication: MULTIPLE MYELOMA
     Route: 042
     Dates: start: 20060403, end: 20060610
  2. DECADRON [Concomitant]
     Route: 048
     Dates: start: 20060506
  3. ARANESP [Concomitant]

REACTIONS (3)
  - ASTHENIA [None]
  - EPISTAXIS [None]
  - MALIGNANT NEOPLASM PROGRESSION [None]
